FAERS Safety Report 11418467 (Version 1)
Quarter: 2015Q3

REPORT INFORMATION
  Report Type: Spontaneous
  Country: US (occurrence: US)
  Receive Date: 20150826
  Receipt Date: 20150826
  Transmission Date: 20151125
  Serious: No
  Sender: FDA-Public Use
  Company Number: US-NOVEN PHARMACEUTICALS, INC.-US2015000499

PATIENT
  Sex: Female
  Weight: 155 kg

DRUGS (1)
  1. MINIVELLE [Suspect]
     Active Substance: ESTRADIOL
     Indication: PRODUCT USED FOR UNKNOWN INDICATION
     Dosage: 0.1 MG, UNKNOWN
     Route: 062

REACTIONS (5)
  - Hot flush [Unknown]
  - Drug ineffective [Unknown]
  - Blood oestrogen decreased [Unknown]
  - Insomnia [Unknown]
  - Feeling hot [Unknown]
